FAERS Safety Report 5700305-8 (Version None)
Quarter: 2008Q2

REPORT INFORMATION
  Report Type: 
  Country: None (occurrence: None)
  Receive Date: 20080410
  Receipt Date: 20080404
  Transmission Date: 20081010
  Serious: Yes (Hospitalization)
  Sender: FDA-Public Use
  Company Number: B0432593A

PATIENT
  Age: 56 Year
  Sex: Female

DRUGS (3)
  1. ZOVIRAX [Suspect]
     Dosage: 200MG PER DAY
     Route: 048
     Dates: start: 20051110, end: 20051111
  2. TOPALGIC ( FRANCE ) [Suspect]
     Dosage: 150MG UNKNOWN
     Route: 048
     Dates: start: 20051110, end: 20051111
  3. ZOVIRAX [Concomitant]
     Route: 061
     Dates: start: 20051110, end: 20051111

REACTIONS (10)
  - ABDOMINAL PAIN UPPER [None]
  - ALANINE AMINOTRANSFERASE INCREASED [None]
  - ASPARTATE AMINOTRANSFERASE INCREASED [None]
  - BLOOD LACTATE DEHYDROGENASE INCREASED [None]
  - GAMMA-GLUTAMYLTRANSFERASE INCREASED [None]
  - HEPATITIS [None]
  - HYPERHIDROSIS [None]
  - MALAISE [None]
  - NAUSEA [None]
  - VOMITING [None]
